FAERS Safety Report 4918234-6 (Version None)
Quarter: 2006Q1

REPORT INFORMATION
  Report Type: 
  Country: None (occurrence: None)
  Receive Date: 20060215
  Receipt Date: 20060201
  Transmission Date: 20060701
  Serious: No
  Sender: FDA-Public Use
  Company Number: 02100-JPN-06-0012

PATIENT
  Age: 74 Year
  Sex: Male

DRUGS (5)
  1. CILOSTAZOL [Suspect]
     Indication: LACUNAR INFARCTION
     Dosage: 200 MG
     Route: 048
     Dates: start: 20051121, end: 20051122
  2. CILOSTAZOL [Suspect]
     Indication: TRANSIENT ISCHAEMIC ATTACK
     Dosage: 200 MG
     Route: 048
     Dates: start: 20051121, end: 20051122
  3. FAMOTIDINE [Concomitant]
  4. AMLODIPINE BESYLATE [Concomitant]
  5. IFENPRODIL TARTRATE [Concomitant]

REACTIONS (13)
  - ANGIOPATHY [None]
  - BLOOD PRESSURE INCREASED [None]
  - BRADYCARDIA [None]
  - CIRCULATORY COLLAPSE [None]
  - DEPRESSED LEVEL OF CONSCIOUSNESS [None]
  - HAEMATOCRIT DECREASED [None]
  - HAEMOGLOBIN DECREASED [None]
  - HYPOTENSION [None]
  - HYPOVOLAEMIA [None]
  - RED BLOOD CELL COUNT DECREASED [None]
  - SOMNOLENCE [None]
  - SUPRAVENTRICULAR EXTRASYSTOLES [None]
  - URINARY INCONTINENCE [None]
